FAERS Safety Report 7783308-1 (Version None)
Quarter: 2011Q3

REPORT INFORMATION
  Report Type: 
  Country: None (occurrence: None)
  Receive Date: 20110928
  Receipt Date: 20110919
  Transmission Date: 20111222
  Serious: Yes (Other)
  Sender: FDA-Public Use
  Company Number: US-BAYER-2011-007023

PATIENT
  Age: 52 Year
  Sex: Female
  Weight: 90.703 kg

DRUGS (9)
  1. IMITREX [Concomitant]
     Dosage: 5 MG, UNK
     Dates: start: 20070718, end: 20090402
  2. VALTREX [Concomitant]
     Dosage: 500 MG, UNK
     Dates: start: 20070927, end: 20090917
  3. SPIRONOLACTONE [Concomitant]
     Dosage: 50 MG, UNK
     Dates: start: 20070503, end: 20090924
  4. AMBIEN CR [Concomitant]
     Dosage: 12.5 MG, UNK
     Dates: start: 20070408, end: 20090318
  5. METADATE CD [Concomitant]
     Dosage: 20 MG, UNK
     Dates: start: 20070819, end: 20090905
  6. YASMIN [Suspect]
     Dosage: UNK
     Dates: start: 20070101, end: 20090101
  7. YAZ [Suspect]
     Dosage: UNK
     Dates: start: 20070101, end: 20090101
  8. VITAMIN B COMPLEX CAP [Concomitant]
  9. SYNTHROID [Concomitant]
     Dosage: UNK
     Dates: start: 20070723, end: 20091003

REACTIONS (5)
  - PAIN [None]
  - CHOLECYSTITIS CHRONIC [None]
  - BILIARY DYSKINESIA [None]
  - GALLBLADDER NON-FUNCTIONING [None]
  - MENTAL DISORDER [None]
